FAERS Safety Report 8592625-7 (Version None)
Quarter: 2012Q3

REPORT INFORMATION
  Report Type: 
  Country: None (occurrence: None)
  Receive Date: 20120814
  Receipt Date: 20120806
  Transmission Date: 20120928
  Serious: Yes (Death, Hospitalization, Other)
  Sender: FDA-Public Use
  Company Number: US-ACTELION-A-US2012-69510

PATIENT
  Age: 48 Year
  Sex: Female

DRUGS (2)
  1. TRACLEER [Suspect]
     Indication: PULMONARY ARTERIAL HYPERTENSION
     Dosage: UNK
     Route: 048
     Dates: end: 20120730
  2. COUMADIN [Concomitant]

REACTIONS (13)
  - HEPATIC FAILURE [None]
  - MYOCARDIAL INFARCTION [None]
  - PULMONARY ARTERIAL HYPERTENSION [None]
  - CARDIAC FAILURE [None]
  - MELAENA [None]
  - GASTROINTESTINAL DISORDER [None]
  - HEPATIC CONGESTION [None]
  - ACUTE RESPIRATORY FAILURE [None]
  - GASTROINTESTINAL HAEMORRHAGE [None]
  - OEDEMA [None]
  - DYSPNOEA [None]
  - MYOCARDIAL ISCHAEMIA [None]
  - INTERNATIONAL NORMALISED RATIO INCREASED [None]
